FAERS Safety Report 10429317 (Version 1)
Quarter: 2014Q3

REPORT INFORMATION
  Report Type: Spontaneous
  Country: US (occurrence: None)
  Receive Date: 20140902
  Receipt Date: 20140902
  Transmission Date: 20150326
  Serious: Yes (Hospitalization)
  Sender: FDA-Public Use
  Company Number: None

PATIENT
  Age: 63 Year
  Sex: Female

DRUGS (7)
  1. LIDOCAINE. [Concomitant]
     Active Substance: LIDOCAINE
  2. DEXTROSE 50% USP [Concomitant]
     Active Substance: DEXTROSE
  3. CEFAZOLIN [Concomitant]
     Active Substance: CEFAZOLIN
  4. WARFARIN [Suspect]
     Active Substance: WARFARIN
     Indication: ATRIAL FIBRILLATION
     Route: 048
     Dates: start: 20140722, end: 20140723
  5. ATORVASTATIN [Concomitant]
     Active Substance: ATORVASTATIN
  6. ACETAMINOPHEN. [Concomitant]
     Active Substance: ACETAMINOPHEN
  7. AMIODARONE [Concomitant]
     Active Substance: AMIODARONE

REACTIONS (1)
  - International normalised ratio increased [None]

NARRATIVE: CASE EVENT DATE: 20140723
